FAERS Safety Report 20536671 (Version 1)
Quarter: 2022Q1

REPORT INFORMATION
  Report Type: Spontaneous
  Country: RS (occurrence: RS)
  Receive Date: 20220302
  Receipt Date: 20220302
  Transmission Date: 20220423
  Serious: Yes (Death, Other)
  Sender: FDA-Public Use
  Company Number: RS-JNJFOC-20211029664

PATIENT
  Age: 63 Year
  Sex: Male

DRUGS (7)
  1. ZYTIGA [Suspect]
     Active Substance: ABIRATERONE ACETATE
     Indication: Prostate cancer metastatic
     Route: 065
     Dates: start: 201709, end: 201910
  2. PRONISON [Suspect]
     Active Substance: PREDNISONE
     Indication: Prostate cancer metastatic
     Route: 065
     Dates: start: 201709, end: 201910
  3. NORVASC [Concomitant]
     Active Substance: AMLODIPINE BESYLATE
     Indication: Hypertension
     Route: 065
  4. DOCETAXEL [Concomitant]
     Active Substance: DOCETAXEL
     Indication: Product used for unknown indication
     Route: 065
     Dates: start: 201608
  5. PREDNISONE [Concomitant]
     Active Substance: PREDNISONE
     Indication: Product used for unknown indication
     Route: 065
     Dates: start: 201608
  6. CYPROTERONE ACETATE [Concomitant]
     Active Substance: CYPROTERONE ACETATE
     Indication: Product used for unknown indication
     Route: 065
  7. NADROPARIN CALCIUM [Concomitant]
     Active Substance: NADROPARIN CALCIUM
     Indication: Product used for unknown indication
     Route: 065

REACTIONS (5)
  - COVID-19 pneumonia [Fatal]
  - Prostate cancer metastatic [Unknown]
  - Prostatic specific antigen increased [Not Recovered/Not Resolved]
  - Oedema peripheral [Unknown]
  - Retroperitoneal lymphadenopathy [Unknown]

NARRATIVE: CASE EVENT DATE: 20171201
